FAERS Safety Report 4899600-4 (Version None)
Quarter: 2006Q1

REPORT INFORMATION
  Report Type: 
  Country: None (occurrence: None)
  Receive Date: 20060131
  Receipt Date: 20051220
  Transmission Date: 20060701
  Serious: Yes (Hospitalization)
  Sender: FDA-Public Use
  Company Number: 2005002417

PATIENT
  Age: 74 Year
  Sex: Female

DRUGS (7)
  1. TARCEVA [Suspect]
     Indication: NON-SMALL CELL LUNG CANCER
     Dosage: 150 MG (QD) ORAL
     Route: 048
     Dates: start: 20051208
  2. ENDOCET (OXYCOCET) [Concomitant]
  3. SYNTHROID [Concomitant]
  4. PRAVACHOL [Concomitant]
  5. CENTRUM [Concomitant]
  6. OSCAL (CALCIUM CARBONATE) [Concomitant]
  7. VALSARTAN [Concomitant]

REACTIONS (1)
  - DUODENAL ULCER PERFORATION [None]
